FAERS Safety Report 4668888-7 (Version None)
Quarter: 2005Q2

REPORT INFORMATION
  Report Type: 
  Country: None (occurrence: None)
  Receive Date: 20050523
  Receipt Date: 20040614
  Transmission Date: 20051028
  Serious: Yes (Other)
  Sender: FDA-Public Use
  Company Number: PHBS2004BE07996

PATIENT
  Age: 83 Year
  Sex: Female

DRUGS (2)
  1. TAMOXIFEN [Concomitant]
     Dosage: 20 MG/D
     Route: 048
     Dates: start: 20030915, end: 20040617
  2. ZOMETA [Suspect]
     Dosage: 4 MG
     Route: 042
     Dates: start: 20020715, end: 20040607

REACTIONS (1)
  - OSTEONECROSIS [None]
